FAERS Safety Report 9789347 (Version 1)
Quarter: 2013Q4

REPORT INFORMATION
  Report Type: Spontaneous
  Country: CA (occurrence: CA)
  Receive Date: 20131231
  Receipt Date: 20131231
  Transmission Date: 20140711
  Serious: Yes (Hospitalization, Other)
  Sender: FDA-Public Use
  Company Number: CA-ROCHE-1324810

PATIENT
  Sex: Female
  Weight: 73.9 kg

DRUGS (5)
  1. HERCEPTIN [Suspect]
     Indication: GASTROINTESTINAL CARCINOMA
     Route: 042
     Dates: end: 2013
  2. XELODA [Suspect]
     Indication: GASTROINTESTINAL CARCINOMA
     Route: 048
  3. PANTOLOC [Concomitant]
  4. FENTANYL PATCH [Concomitant]
  5. HYDROMORPHONE [Concomitant]

REACTIONS (3)
  - Infection [Unknown]
  - Pulmonary thrombosis [Not Recovered/Not Resolved]
  - White blood cell count increased [Unknown]
